FAERS Safety Report 6214873-3 (Version None)
Quarter: 2009Q2

REPORT INFORMATION
  Report Type: 
  Country: None (occurrence: None)
  Receive Date: 20090604
  Receipt Date: 20090523
  Transmission Date: 20091009
  Serious: Yes (Hospitalization)
  Sender: FDA-Public Use
  Company Number: US-PFIZER INC-2008080141

PATIENT
  Sex: Female
  Weight: 78.5 kg

DRUGS (3)
  1. SUNITINIB MALATE [Suspect]
     Indication: BREAST CANCER
     Dosage: 25 MG, 1X/DAY
     Route: 048
     Dates: start: 20080710, end: 20080911
  2. PACLITAXEL [Suspect]
     Indication: BREAST CANCER
     Dosage: 119.6 MG, WEEKLY 3 OF 4 WEEKS
     Route: 042
     Dates: start: 20080710, end: 20080918
  3. GLIMEPIRIDE [Concomitant]
     Indication: DIABETES MELLITUS
     Dates: start: 20080501

REACTIONS (5)
  - DEHYDRATION [None]
  - EJECTION FRACTION DECREASED [None]
  - FATIGUE [None]
  - MYOCARDIAL ISCHAEMIA [None]
  - URINARY TRACT INFECTION [None]
